FAERS Safety Report 11604451 (Version 1)
Quarter: 2015Q4

REPORT INFORMATION
  Report Type: Spontaneous
  Country: US (occurrence: None)
  Receive Date: 20151006
  Receipt Date: 20151006
  Transmission Date: 20160304
  Serious: Yes (Hospitalization)
  Sender: FDA-Public Use
  Company Number: None

PATIENT
  Age: 71 Year
  Sex: Male
  Weight: 67.4 kg

DRUGS (2)
  1. CETUXIMAB [Suspect]
     Active Substance: CETUXIMAB
     Indication: LUNG NEOPLASM MALIGNANT
     Route: 042
     Dates: start: 20150714, end: 20150922
  2. CARBOPLATIN. [Suspect]
     Active Substance: CARBOPLATIN
     Indication: LUNG NEOPLASM MALIGNANT
     Route: 042
     Dates: start: 20150505, end: 20150922

REACTIONS (8)
  - Malaise [None]
  - Hypoxia [None]
  - Hypotension [None]
  - Dyspnoea [None]
  - Tachycardia [None]
  - Paraesthesia [None]
  - Loss of consciousness [None]
  - Flushing [None]

NARRATIVE: CASE EVENT DATE: 20150922
